FAERS Safety Report 23302633 (Version 2)
Quarter: 2023Q4

REPORT INFORMATION
  Report Type: Spontaneous
  Country: FR (occurrence: None)
  Receive Date: 20231215
  Receipt Date: 20231220
  Transmission Date: 20240110
  Serious: Yes (Other)
  Sender: FDA-Public Use
  Company Number: 2023A280927

PATIENT
  Age: 61 Year
  Sex: Male

DRUGS (5)
  1. FASENRA [Suspect]
     Active Substance: BENRALIZUMAB
     Indication: Bronchopulmonary aspergillosis
     Route: 058
     Dates: start: 2018
  2. ASPIRIN [Concomitant]
     Active Substance: ASPIRIN
  3. CLAVIX [Concomitant]
  4. VALPROATE SODIUM [Concomitant]
     Active Substance: VALPROATE SODIUM
  5. VIMPAT [Concomitant]
     Active Substance: LACOSAMIDE

REACTIONS (11)
  - Cerebrovascular accident [Unknown]
  - Seizure [Unknown]
  - Intracranial aneurysm [Unknown]
  - Fatigue [Not Recovered/Not Resolved]
  - Malaise [Unknown]
  - Gait inability [Unknown]
  - Limb discomfort [Unknown]
  - Nasopharyngitis [Unknown]
  - Feeling hot [Unknown]
  - Bronchial disorder [Unknown]
  - Off label use [Unknown]

NARRATIVE: CASE EVENT DATE: 20231205
